FAERS Safety Report 13715255 (Version 5)
Quarter: 2017Q4

REPORT INFORMATION
  Report Type: Report from Study
  Country: DE (occurrence: DE)
  Receive Date: 20170704
  Receipt Date: 20171108
  Transmission Date: 20180320
  Serious: Yes (Hospitalization, Other)
  Sender: FDA-Public Use
  Company Number: DE-JNJFOC-20170615567

PATIENT
  Age: 86 Year
  Sex: Female
  Weight: 65.7 kg

DRUGS (52)
  1. RIVAROXABAN [Suspect]
     Active Substance: RIVAROXABAN
     Indication: AORTIC VALVE REPLACEMENT
     Route: 048
     Dates: start: 20170607, end: 20170618
  2. RIVAROXABAN [Suspect]
     Active Substance: RIVAROXABAN
     Indication: THROMBOSIS PROPHYLAXIS
     Route: 048
     Dates: start: 20170607, end: 20170618
  3. ACETYLSALICYLIC ACID [Suspect]
     Active Substance: ASPIRIN
     Indication: AORTIC VALVE REPLACEMENT
     Route: 048
     Dates: end: 20170601
  4. AMLODIPINE [Concomitant]
     Active Substance: AMLODIPINE BESYLATE
     Route: 048
     Dates: start: 20170603, end: 20170616
  5. DIPIDOLOR [Concomitant]
     Active Substance: PIRITRAMIDE
     Route: 048
     Dates: start: 20170602, end: 20170602
  6. JONOSTERIL [Concomitant]
     Active Substance: CALCIUM ACETATE\MAGNESIUM ACETATE\POTASSIUM ACETATE\SODIUM ACETATE\SODIUM CHLORIDE
     Route: 042
     Dates: start: 20170712, end: 20170719
  7. HEPARIN [Concomitant]
     Active Substance: HEPARIN SODIUM
     Route: 042
     Dates: start: 20170602, end: 20170602
  8. RAMIPRIL. [Concomitant]
     Active Substance: RAMIPRIL
     Route: 048
     Dates: start: 20170701, end: 20170708
  9. RAMIPRIL. [Concomitant]
     Active Substance: RAMIPRIL
     Route: 048
     Dates: start: 20170603, end: 20170610
  10. HEPARIN [Concomitant]
     Active Substance: HEPARIN SODIUM
     Route: 042
     Dates: start: 20170719, end: 20170721
  11. DIPIDOLOR [Concomitant]
     Active Substance: PIRITRAMIDE
     Route: 058
     Dates: start: 20170628, end: 20170703
  12. ACETYLSALICYLIC ACID [Suspect]
     Active Substance: ASPIRIN
     Indication: THROMBOSIS PROPHYLAXIS
     Route: 048
     Dates: start: 20170603, end: 20170606
  13. BISOPROLOL [Concomitant]
     Active Substance: BISOPROLOL
     Route: 048
     Dates: start: 20170611, end: 20170620
  14. RAMIPRIL. [Concomitant]
     Active Substance: RAMIPRIL
     Route: 048
     Dates: end: 20170601
  15. RAMIPRIL. [Concomitant]
     Active Substance: RAMIPRIL
     Route: 048
     Dates: start: 20170611, end: 20170626
  16. SIMVASTATIN. [Concomitant]
     Active Substance: SIMVASTATIN
     Route: 048
     Dates: end: 20170606
  17. AMLODIPINE [Concomitant]
     Active Substance: AMLODIPINE BESYLATE
     Route: 048
     Dates: end: 20170601
  18. TOREM [Concomitant]
     Active Substance: TORSEMIDE
     Route: 048
     Dates: end: 20170601
  19. CEFAZOLIN [Concomitant]
     Active Substance: CEFAZOLIN
     Route: 042
     Dates: start: 20170605, end: 20170605
  20. NOVALGIN [Concomitant]
     Active Substance: METAMIZOLE SODIUM
     Route: 042
     Dates: start: 20170602, end: 20170602
  21. DIPIDOLOR [Concomitant]
     Active Substance: PIRITRAMIDE
     Route: 058
     Dates: start: 20170623, end: 20170623
  22. ACETYLSALICYLIC ACID [Suspect]
     Active Substance: ASPIRIN
     Indication: THROMBOSIS PROPHYLAXIS
     Route: 048
     Dates: end: 20170601
  23. BISOPROLOL [Concomitant]
     Active Substance: BISOPROLOL
     Route: 048
     Dates: end: 20170601
  24. CLOPIDOGREL [Concomitant]
     Active Substance: CLOPIDOGREL BISULFATE
     Route: 048
     Dates: start: 20170602, end: 20170603
  25. CEFAZOLIN [Concomitant]
     Active Substance: CEFAZOLIN
     Route: 042
     Dates: start: 20160602, end: 20170602
  26. JONOSTERIL [Concomitant]
     Active Substance: CALCIUM ACETATE\MAGNESIUM ACETATE\POTASSIUM ACETATE\SODIUM ACETATE\SODIUM CHLORIDE
     Dosage: 500 ML, ONCE
     Route: 042
     Dates: start: 20170602, end: 20170602
  27. HEPARIN [Concomitant]
     Active Substance: HEPARIN SODIUM
     Route: 042
     Dates: start: 20170603, end: 20170603
  28. BISOPROLOL [Concomitant]
     Active Substance: BISOPROLOL
     Route: 048
     Dates: start: 20170703
  29. BISOPROLOL [Concomitant]
     Active Substance: BISOPROLOL
     Route: 048
     Dates: start: 20170629, end: 20170702
  30. AMLODIPINE [Concomitant]
     Active Substance: AMLODIPINE BESYLATE
     Route: 048
     Dates: start: 20170702, end: 20170708
  31. TOREM [Concomitant]
     Active Substance: TORSEMIDE
     Route: 048
     Dates: start: 20170603
  32. IRENAT [Concomitant]
     Active Substance: SODIUM PERCHLORATE MONOHYDRATE
     Route: 048
     Dates: start: 20170530, end: 20170612
  33. CEFAZOLIN [Concomitant]
     Active Substance: CEFAZOLIN
     Route: 042
     Dates: start: 20170604, end: 20170604
  34. JONOSTERIL [Concomitant]
     Active Substance: CALCIUM ACETATE\MAGNESIUM ACETATE\POTASSIUM ACETATE\SODIUM ACETATE\SODIUM CHLORIDE
     Route: 042
     Dates: start: 20170615, end: 20170703
  35. HEPARIN [Concomitant]
     Active Substance: HEPARIN SODIUM
     Route: 042
     Dates: start: 20170606, end: 20170606
  36. HEPARIN [Concomitant]
     Active Substance: HEPARIN SODIUM
     Route: 042
     Dates: start: 20170621, end: 20170714
  37. REMIFENTANIL [Concomitant]
     Active Substance: REMIFENTANIL
     Route: 042
     Dates: start: 20170602, end: 20170602
  38. ACETYLSALICYLIC ACID [Suspect]
     Active Substance: ASPIRIN
     Indication: AORTIC VALVE REPLACEMENT
     Route: 048
     Dates: start: 20170607, end: 20170618
  39. ACETYLSALICYLIC ACID [Suspect]
     Active Substance: ASPIRIN
     Indication: AORTIC VALVE REPLACEMENT
     Route: 048
     Dates: start: 20170603, end: 20170606
  40. BISOPROLOL [Concomitant]
     Active Substance: BISOPROLOL
     Route: 048
     Dates: start: 20170604, end: 20170610
  41. CLOPIDOGREL [Concomitant]
     Active Substance: CLOPIDOGREL BISULFATE
     Route: 048
     Dates: start: 20170623
  42. CEFAZOLIN [Concomitant]
     Active Substance: CEFAZOLIN
     Route: 042
  43. PROTAMINE [Concomitant]
     Active Substance: PROTAMINE
     Route: 042
     Dates: start: 20170602, end: 20170602
  44. DEXAMETHASONE. [Concomitant]
     Active Substance: DEXAMETHASONE
     Route: 042
     Dates: start: 20170602, end: 20170602
  45. ACETYLSALICYLIC ACID [Suspect]
     Active Substance: ASPIRIN
     Indication: THROMBOSIS PROPHYLAXIS
     Route: 048
     Dates: start: 20170607, end: 20170618
  46. BISOPROLOL [Concomitant]
     Active Substance: BISOPROLOL
     Route: 048
     Dates: start: 20170624
  47. METHIZOL [Concomitant]
     Active Substance: METHIMAZOLE
     Route: 048
     Dates: start: 20170603
  48. METHIZOL [Concomitant]
     Active Substance: METHIMAZOLE
     Route: 048
     Dates: end: 20170601
  49. CLOPIDOGREL [Concomitant]
     Active Substance: CLOPIDOGREL BISULFATE
     Route: 048
     Dates: start: 20170601, end: 20170601
  50. CEFAZOLIN [Concomitant]
     Active Substance: CEFAZOLIN
     Route: 042
     Dates: start: 20170603, end: 20170603
  51. HEPARIN [Concomitant]
     Active Substance: HEPARIN SODIUM
     Route: 042
     Dates: start: 20170604, end: 20170605
  52. POTASSIUM [Concomitant]
     Active Substance: POTASSIUM
     Route: 042
     Dates: start: 20170602, end: 20170602

REACTIONS (7)
  - Tachycardia [Recovering/Resolving]
  - Mouth haemorrhage [Recovered/Resolved]
  - Sepsis [Recovered/Resolved]
  - Pemphigus [Recovered/Resolved]
  - Pleural effusion [Recovered/Resolved]
  - Cyanosis [Recovering/Resolving]
  - Circulatory collapse [Not Recovered/Not Resolved]

NARRATIVE: CASE EVENT DATE: 20170611
